FAERS Safety Report 11322265 (Version 2)
Quarter: 2015Q3

REPORT INFORMATION
  Report Type: Spontaneous
  Country: US (occurrence: US)
  Receive Date: 20150729
  Receipt Date: 20150923
  Transmission Date: 20151125
  Serious: Yes (Hospitalization)
  Sender: FDA-Public Use
  Company Number: US-JNJFOC-20150717271

PATIENT
  Age: 64 Year
  Sex: Female
  Weight: 58.97 kg

DRUGS (2)
  1. WOMENS ROGAINE UNSCENTED [Suspect]
     Active Substance: MINOXIDIL
     Indication: ALOPECIA
     Dosage: HALF A CAPFUL. THE PATIENT SKIPPED A DAY HERE AND THERE
     Route: 061
     Dates: start: 201502
  2. WOMENS ROGAINE UNSCENTED [Suspect]
     Active Substance: MINOXIDIL
     Indication: ALOPECIA
     Route: 061
     Dates: start: 201505, end: 201507

REACTIONS (3)
  - Adverse event [Unknown]
  - Alopecia [Not Recovered/Not Resolved]
  - Wrong technique in product usage process [Unknown]
